FAERS Safety Report 6500683-6 (Version None)
Quarter: 2009Q4

REPORT INFORMATION
  Report Type: 
  Country: None (occurrence: None)
  Receive Date: 20091216
  Receipt Date: 20090126
  Transmission Date: 20100525
  Serious: No
  Sender: FDA-Public Use
  Company Number: A0762791A

PATIENT
  Sex: Male

DRUGS (2)
  1. COMMIT [Suspect]
     Dates: start: 20081226, end: 20081226
  2. NICODERM CQ [Suspect]

REACTIONS (4)
  - DRUG INEFFECTIVE [None]
  - LACRIMATION INCREASED [None]
  - RHINORRHOEA [None]
  - SNEEZING [None]
